FAERS Safety Report 4453022-9 (Version None)
Quarter: 2004Q3

REPORT INFORMATION
  Report Type: 
  Country: None (occurrence: None)
  Receive Date: 20040916
  Receipt Date: 20040907
  Transmission Date: 20050211
  Serious: Yes (Other)
  Sender: FDA-Public Use
  Company Number: 2004232266US

PATIENT
  Sex: Female

DRUGS (7)
  1. PROVERA [Suspect]
     Dates: start: 19950517, end: 19960809
  2. PREMARIN [Suspect]
     Dates: start: 19951120, end: 19960809
  3. PREMPRO [Suspect]
     Dates: start: 20000310, end: 20010401
  4. LOESTRIN 1.5/30 [Suspect]
  5. NORDETTE-21 [Suspect]
     Dates: start: 19970214, end: 20010401
  6. PREMPHASE 14/14 [Suspect]
     Dates: start: 19971106, end: 20000310
  7. ACTIVELLA [Suspect]
     Dates: start: 20010401, end: 20010401

REACTIONS (1)
  - BREAST CANCER FEMALE [None]
